FAERS Safety Report 11893382 (Version 1)
Quarter: 2016Q1

REPORT INFORMATION
  Report Type: Spontaneous
  Country: CH (occurrence: CH)
  Receive Date: 20160106
  Receipt Date: 20160106
  Transmission Date: 20160526
  Serious: Yes (Life-Threatening, Hospitalization, Other)
  Sender: FDA-Public Use
  Company Number: CH-GLAXOSMITHKLINE-CH2016000449

PATIENT
  Age: 38 Year
  Sex: Male
  Weight: 95 kg

DRUGS (6)
  1. LAMICTAL [Suspect]
     Active Substance: LAMOTRIGINE
     Indication: EPILEPSY
     Dosage: 50 MG, QD
     Route: 048
     Dates: start: 201403, end: 20140411
  2. LAMICTAL [Suspect]
     Active Substance: LAMOTRIGINE
     Indication: EPILEPSY
     Route: 048
     Dates: start: 20140226, end: 20140411
  3. TRIAMCINOLON [Concomitant]
     Indication: RASH MACULO-PAPULAR
     Route: 061
     Dates: start: 20140408
  4. PREDNISONE. [Concomitant]
     Active Substance: PREDNISONE
     Indication: RASH MACULO-PAPULAR
     Route: 048
     Dates: start: 20140414, end: 20140414
  5. KEPPRA 1000 MG FILMTABLETTEN [Concomitant]
     Indication: EPILEPSY
     Route: 048
     Dates: start: 201402, end: 20140417
  6. URBANYL [Concomitant]
     Active Substance: CLOBAZAM
     Indication: EPILEPSY
     Route: 048
     Dates: start: 201401

REACTIONS (9)
  - Rash maculo-papular [Recovering/Resolving]
  - Acute kidney injury [Recovered/Resolved]
  - Skin test positive [Recovered/Resolved]
  - Normochromic normocytic anaemia [Not Recovered/Not Resolved]
  - Hepatocellular injury [Recovered/Resolved]
  - Hypoalbuminaemia [Unknown]
  - Pyrexia [Recovered/Resolved]
  - Blood lactate dehydrogenase increased [Recovering/Resolving]
  - Drug reaction with eosinophilia and systemic symptoms [Recovering/Resolving]

NARRATIVE: CASE EVENT DATE: 201404
